FAERS Safety Report 9422660 (Version 1)
Quarter: 2013Q3

REPORT INFORMATION
  Report Type: Spontaneous
  Country: US (occurrence: US)
  Receive Date: 20130726
  Receipt Date: 20130726
  Transmission Date: 20140515
  Serious: Yes (Death, Hospitalization, Other)
  Sender: FDA-Public Use
  Company Number: US-PFIZER INC-2013218049

PATIENT
  Age: 53 Year
  Sex: Female
  Weight: 95.24 kg

DRUGS (2)
  1. CHANTIX [Suspect]
     Indication: SMOKING CESSATION THERAPY
     Dosage: UNK
     Route: 048
     Dates: start: 2010, end: 2011
  2. NEURONTIN [Concomitant]
     Indication: SPINAL FRACTURE
     Dosage: 1600 MG, DAILY
     Route: 048

REACTIONS (7)
  - Lung disorder [Fatal]
  - Hypoglycaemic coma [Not Recovered/Not Resolved]
  - Abnormal behaviour [Not Recovered/Not Resolved]
  - Paralysis [Not Recovered/Not Resolved]
  - Activities of daily living impaired [Not Recovered/Not Resolved]
  - Aphasia [Not Recovered/Not Resolved]
  - Tobacco user [Unknown]
